FAERS Safety Report 7228348 (Version 2)
Quarter: 2014Q2

REPORT INFORMATION
  Report Type: Spontaneous
  Country: GB (occurrence: None)
  Receive Date: 20091207
  Receipt Date: 20140415
  Transmission Date: 20141212
  Serious: Yes (Other)
  Sender: FDA-Public Use
  Company Number: AUR-APL-2009-01349

PATIENT
  Age: 82 Year
  Sex: Female

DRUGS (1)
  1. ALENDRONIC ACID [Suspect]
     Indication: SPINAL FRACTURE
     Dosage: 70MG -ONCE A WEEK- UNK

REACTIONS (3)
  - Femur fracture [None]
  - Pathological fracture [None]
  - Fibula fracture [None]
